FAERS Safety Report 22045180 (Version 3)
Quarter: 2023Q2

REPORT INFORMATION
  Report Type: Spontaneous
  Country: US (occurrence: US)
  Receive Date: 20230228
  Receipt Date: 20230413
  Transmission Date: 20230721
  Serious: Yes (Other)
  Sender: FDA-Public Use
  Company Number: US-INTRA-CELLULAR THERAPIES, INC.-2023ICT00284

PATIENT
  Sex: Female
  Weight: 82.993 kg

DRUGS (12)
  1. CAPLYTA [Suspect]
     Active Substance: LUMATEPERONE
     Indication: Schizoaffective disorder
     Dosage: 42 MG, 1X/DAY
     Route: 048
     Dates: end: 202201
  2. CAPLYTA [Suspect]
     Active Substance: LUMATEPERONE
     Indication: Schizoaffective disorder
     Dosage: UNK
     Dates: start: 20230302, end: 20230328
  3. REXULTI [Suspect]
     Active Substance: BREXPIPRAZOLE
     Dosage: 4 MG
  4. REXULTI [Suspect]
     Active Substance: BREXPIPRAZOLE
     Dosage: HALVED (2 MG), AT BEDTIME
  5. JORNAY PM EXTENDED-RELEASE [Suspect]
     Active Substance: METHYLPHENIDATE HYDROCHLORIDE
     Dosage: 1 CAPSULE (100 MG), 1X/DAY AT BEDTIME
     Route: 048
  6. GLIMEPIRIDE [Concomitant]
     Active Substance: GLIMEPIRIDE
     Dosage: 1 TABLET (4 MG), 1X/DAY AT BEDTIME
     Route: 048
  7. OLMESARTAN MEDOXOMIL [Concomitant]
     Active Substance: OLMESARTAN MEDOXOMIL
     Dosage: 1 TABLET (5 MG), 1X/DAY AT BEDTIME
     Route: 048
  8. QTERN [DAPAGLIFLOZIN PROPANEDIOL MONOHYDRATE;SAXAGLIPTIN HYDROCHLORIDE [Concomitant]
     Dosage: 1 TABLETS, 1X/DAY AT BEDTIME
     Route: 048
  9. METFORMIN HYDROCHLORIDE [Concomitant]
     Active Substance: METFORMIN HYDROCHLORIDE
     Dosage: 1 PILL (500 MG), 1X/DAY AT BEDTIME
  10. ATORVASTATIN [Concomitant]
     Active Substance: ATORVASTATIN
     Dosage: 1 TABLET (10 MG), 1X/DAY AT BEDTIME
  11. OZEMPIC [Concomitant]
     Active Substance: SEMAGLUTIDE
     Dosage: 2 MG, 1X/WEEK
     Route: 058
  12. DEPO-PROVERA [Concomitant]
     Active Substance: MEDROXYPROGESTERONE ACETATE
     Indication: Contraception
     Route: 058

REACTIONS (7)
  - Tardive dyskinesia [Recovered/Resolved]
  - Gastric ulcer [Unknown]
  - Dyspnoea [Unknown]
  - Constipation [Recovered/Resolved]
  - Drug interaction [Recovered/Resolved]
  - Off label use [Recovered/Resolved]
  - Unevaluable event [Unknown]

NARRATIVE: CASE EVENT DATE: 20220101
